FAERS Safety Report 25886346 (Version 1)
Quarter: 2025Q4

REPORT INFORMATION
  Report Type: Spontaneous
  Country: EU (occurrence: EU)
  Receive Date: 20251006
  Receipt Date: 20251006
  Transmission Date: 20260118
  Serious: Yes (Other)
  Sender: SANDOZ
  Company Number: EU-SANDOZ-SDZ2025DE069478

PATIENT
  Age: 68 Year
  Sex: Female

DRUGS (2)
  1. OMEPRAZOLE [Suspect]
     Active Substance: OMEPRAZOLE
     Indication: Oesophagitis
     Dosage: 40-0-40 MG
     Route: 048
     Dates: start: 2014, end: 2022
  2. OMEPRAZOLE [Suspect]
     Active Substance: OMEPRAZOLE
     Indication: Gastritis

REACTIONS (3)
  - Cerebellar syndrome [Recovered/Resolved]
  - Hypokalaemia [Recovered/Resolved]
  - Magnesium deficiency [Recovering/Resolving]

NARRATIVE: CASE EVENT DATE: 20220401
